FAERS Safety Report 5997066-4 (Version None)
Quarter: 2008Q4

REPORT INFORMATION
  Report Type: 
  Country: None (occurrence: None)
  Receive Date: 20081212
  Receipt Date: 20081103
  Transmission Date: 20090506
  Serious: No
  Sender: FDA-Public Use
  Company Number: US-ABBOTT-08P-163-0485252-00

PATIENT
  Sex: Female

DRUGS (10)
  1. HUMIRA [Suspect]
     Indication: PSORIATIC ARTHROPATHY
     Route: 058
     Dates: start: 20071001
  2. METHOTREXATE [Concomitant]
     Indication: DRUG USE FOR UNKNOWN INDICATION
  3. NUEROTIN [Concomitant]
     Indication: DRUG USE FOR UNKNOWN INDICATION
  4. CARISOPRODOL [Concomitant]
     Indication: DRUG USE FOR UNKNOWN INDICATION
  5. LORTAB [Concomitant]
     Indication: DRUG USE FOR UNKNOWN INDICATION
  6. RESTROIL [Concomitant]
     Indication: DRUG USE FOR UNKNOWN INDICATION
  7. ESTRADIOL [Concomitant]
     Indication: DRUG USE FOR UNKNOWN INDICATION
  8. ENALAPRIL MALEATE [Concomitant]
     Indication: DRUG USE FOR UNKNOWN INDICATION
  9. HYDROCHLOROTHIAZIDE [Concomitant]
     Indication: DRUG USE FOR UNKNOWN INDICATION
  10. DICYCLOMINE HCL [Concomitant]
     Indication: DRUG USE FOR UNKNOWN INDICATION

REACTIONS (5)
  - EXOSTOSIS [None]
  - HAIR DISORDER [None]
  - HYPOAESTHESIA [None]
  - PLANTAR FASCIITIS [None]
  - PSORIASIS [None]
